FAERS Safety Report 6286785-0 (Version None)
Quarter: 2009Q3

REPORT INFORMATION
  Report Type: 
  Country: None (occurrence: None)
  Receive Date: 20090716
  Receipt Date: 20080606
  Transmission Date: 20100115
  Serious: Yes (Other)
  Sender: FDA-Public Use
  Company Number: 2008BI011078

PATIENT
  Age: 45 Year
  Weight: 69.4003 kg

DRUGS (3)
  1. AVONEX [Suspect]
     Indication: MULTIPLE SCLEROSIS
     Dosage: 30 UG;QW;IM
     Route: 030
     Dates: start: 19980101
  2. VITAMINS [Concomitant]
  3. PREV MEDS [Concomitant]

REACTIONS (7)
  - ANAPHYLACTIC REACTION [None]
  - ANGIOEDEMA [None]
  - HYPOAESTHESIA [None]
  - MENOPAUSAL SYMPTOMS [None]
  - SMEAR CERVIX ABNORMAL [None]
  - URTICARIA [None]
  - VULVOVAGINAL CANDIDIASIS [None]
